FAERS Safety Report 5978820-1 (Version None)
Quarter: 2008Q4

REPORT INFORMATION
  Report Type: 
  Country: None (occurrence: None)
  Receive Date: 20081204
  Receipt Date: 20081125
  Transmission Date: 20090506
  Serious: Yes (Hospitalization)
  Sender: FDA-Public Use
  Company Number: PHHY2008CL29690

PATIENT
  Age: 71 Year
  Sex: Female

DRUGS (4)
  1. TAREG [Suspect]
     Indication: HYPERTENSION
     Dosage: 80 MG, QD
  2. EUTIROX [Concomitant]
  3. ACETAMINOPHEN [Concomitant]
  4. ATORVASTATIN CALCIUM [Concomitant]

REACTIONS (3)
  - FALL [None]
  - HIP FRACTURE [None]
  - HIP SURGERY [None]
